FAERS Safety Report 25538172 (Version 1)
Quarter: 2025Q3

REPORT INFORMATION
  Report Type: Spontaneous
  Country: EU (occurrence: EU)
  Receive Date: 20250710
  Receipt Date: 20250710
  Transmission Date: 20251021
  Serious: Yes (Hospitalization, Other)
  Sender: RANBAXY
  Company Number: EU-EMA-DD-20250321-7482691-073220

PATIENT
  Age: 89 Year
  Sex: Female

DRUGS (5)
  1. GABAPENTIN [Interacting]
     Active Substance: GABAPENTIN
     Indication: Trigeminal neuralgia
     Dosage: 300 MILLIGRAM, TID
     Route: 065
  2. RAMIPRIL [Suspect]
     Active Substance: RAMIPRIL
     Indication: Product used for unknown indication
     Dosage: 2.5 MILLIGRAM, DAILY
     Route: 065
  3. ATENOLOL [Suspect]
     Active Substance: ATENOLOL
     Indication: Product used for unknown indication
     Dosage: 100 MILLIGRAM, DAILY
     Route: 065
  4. PRADAXA [Suspect]
     Active Substance: DABIGATRAN ETEXILATE MESYLATE
     Indication: Product used for unknown indication
     Dosage: 110 MILLIGRAM, BID
     Route: 065
  5. FLECAINIDE [Interacting]
     Active Substance: FLECAINIDE
     Indication: Atrial fibrillation
     Dosage: 200 MILLIGRAM, DAILY
     Route: 065
     Dates: start: 2013

REACTIONS (6)
  - Dizziness [Recovered/Resolved]
  - Asthenia [Recovered/Resolved]
  - Electrocardiogram QRS complex prolonged [Recovered/Resolved]
  - Toxicity to various agents [Recovered/Resolved]
  - Bradyarrhythmia [Recovered/Resolved]
  - Drug interaction [Unknown]
